FAERS Safety Report 7559574-4 (Version None)
Quarter: 2011Q2

REPORT INFORMATION
  Report Type: 
  Country: None (occurrence: None)
  Receive Date: 20110613
  Receipt Date: 20110528
  Transmission Date: 20111010
  Serious: Yes (Other)
  Sender: FDA-Public Use
  Company Number: TPA2011A02804

PATIENT
  Age: 81 Year
  Sex: Female
  Weight: 104.3 kg

DRUGS (8)
  1. ACTOS [Suspect]
     Indication: DIABETES MELLITUS
     Dosage: 15 MG, QAM, PER ORAL
     Route: 048
     Dates: end: 20110528
  2. HYDRALAZINE HCL [Concomitant]
  3. PRAVASTATIN [Concomitant]
  4. ASPIRIN [Suspect]
     Indication: CARDIOVASCULAR EVENT PROPHYLAXIS
     Dosage: 1 IN 1 D, PER ORAL
     Route: 048
     Dates: end: 20110201
  5. MICARDIS 80 (TELMISARTAN) [Concomitant]
  6. PLAVIX [Suspect]
     Indication: ANTICOAGULANT THERAPY
     Dosage: 75 MG, 1 IN 1 D, PER ORAL
     Route: 048
  7. ISOSORBIDE (ISOSORBIDE) [Concomitant]
  8. HYDROCHLOROTHIAZIDE [Concomitant]

REACTIONS (11)
  - CORONARY ARTERY OCCLUSION [None]
  - VASCULAR CALCIFICATION [None]
  - DYSPNOEA EXERTIONAL [None]
  - DYSPNOEA [None]
  - FLUID RETENTION [None]
  - ASTHENIA [None]
  - ANAEMIA [None]
  - PAIN IN EXTREMITY [None]
  - HAEMORRHAGE [None]
  - FATIGUE [None]
  - WEIGHT INCREASED [None]
